FAERS Safety Report 7147968-0 (Version None)
Quarter: 2010Q4

REPORT INFORMATION
  Report Type: 
  Country: None (occurrence: None)
  Receive Date: 20101207
  Receipt Date: 20101207
  Transmission Date: 20110411
  Serious: No
  Sender: FDA-Public Use
  Company Number: None

PATIENT
  Age: 36 Year
  Weight: 61.2356 kg

DRUGS (3)
  1. LEXAPRO [Suspect]
     Indication: GENERALISED ANXIETY DISORDER
     Dosage: 10MG DAILY PO
     Route: 048
     Dates: start: 20101115, end: 20101201
  2. LEXAPRO [Suspect]
     Indication: OBSESSIVE-COMPULSIVE DISORDER
     Dosage: 10MG DAILY PO
     Route: 048
     Dates: start: 20101115, end: 20101201
  3. CLONAZEPAM [Concomitant]

REACTIONS (3)
  - AGGRESSION [None]
  - AKATHISIA [None]
  - ANGER [None]
